FAERS Safety Report 7411838-0 (Version None)
Quarter: 2011Q2

REPORT INFORMATION
  Report Type: 
  Country: None (occurrence: None)
  Receive Date: 20110413
  Receipt Date: 20110404
  Transmission Date: 20111010
  Serious: Yes (Other)
  Sender: FDA-Public Use
  Company Number: FR-ASTRAZENECA-2011SE19411

PATIENT
  Age: 21657 Day
  Sex: Female

DRUGS (5)
  1. UN ALFA [Concomitant]
     Route: 048
  2. TAMOXIFENE BASE [Concomitant]
     Route: 048
  3. LEVOTHYROX [Concomitant]
     Indication: THYROIDECTOMY
     Route: 048
  4. ATACAND [Suspect]
     Indication: HYPERTENSION
     Route: 048
     Dates: start: 20100128, end: 20100211
  5. MOCLAMINE [Concomitant]
     Route: 048

REACTIONS (1)
  - MALAISE [None]
